FAERS Safety Report 10730480 (Version 1)
Quarter: 2015Q1

REPORT INFORMATION
  Report Type: Spontaneous
  Country: US (occurrence: None)
  Receive Date: 20150120
  Receipt Date: 20150120
  Transmission Date: 20150721
  Serious: No
  Sender: FDA-Public Use
  Company Number: None

PATIENT
  Age: 33 Year
  Sex: Female
  Weight: 54.43 kg

DRUGS (1)
  1. BACTRIM [Suspect]
     Active Substance: SULFAMETHOXAZOLE\TRIMETHOPRIM
     Indication: URINARY TRACT INFECTION
     Dosage: 1 PILL TWICE DAILY TAKEN BY MOUTH
     Route: 048
     Dates: start: 20150114, end: 20150114

REACTIONS (9)
  - Cough [None]
  - Back pain [None]
  - Muscle tightness [None]
  - Arthralgia [None]
  - Chills [None]
  - Weight bearing difficulty [None]
  - Gait disturbance [None]
  - Flushing [None]
  - Oropharyngeal pain [None]

NARRATIVE: CASE EVENT DATE: 20150114
